FAERS Safety Report 9667741 (Version 1)
Quarter: 2013Q4

REPORT INFORMATION
  Report Type: Spontaneous
  Country: US (occurrence: US)
  Receive Date: 20131104
  Receipt Date: 20131104
  Transmission Date: 20140711
  Serious: No
  Sender: FDA-Public Use
  Company Number: US-ENDO PHARMACEUTICALS INC.-PRED20110005

PATIENT
  Age: 48 Year
  Sex: Female

DRUGS (3)
  1. PREDNISONE [Suspect]
     Indication: PRODUCT USED FOR UNKNOWN INDICATION
     Dosage: UNK
     Route: 048
  2. APIDRA [Suspect]
     Indication: PRODUCT USED FOR UNKNOWN INDICATION
     Dosage: 100 IU/ML
     Route: 058
     Dates: end: 201101
  3. APIDRA [Suspect]
     Dosage: 100 IU/ML
     Route: 058
     Dates: start: 201101

REACTIONS (2)
  - Injection site haemorrhage [Not Recovered/Not Resolved]
  - Blood glucose increased [Not Recovered/Not Resolved]
